FAERS Safety Report 25851736 (Version 2)
Quarter: 2025Q4

REPORT INFORMATION
  Report Type: Spontaneous
  Country: EU (occurrence: EU)
  Receive Date: 20250926
  Receipt Date: 20251008
  Transmission Date: 20260118
  Serious: Yes (Hospitalization, Other)
  Sender: TEVA
  Company Number: None

PATIENT
  Age: 71 Year
  Sex: Female
  Weight: 79 kg

DRUGS (3)
  1. LEVOFLOXACIN [Suspect]
     Active Substance: LEVOFLOXACIN
     Indication: Urinary tract disorder
     Route: 048
     Dates: start: 20240514, end: 20240518
  2. ENTOCORT [Concomitant]
     Active Substance: BUDESONIDE
     Indication: Product used for unknown indication
  3. LEVOFLOXACIN [Suspect]
     Active Substance: LEVOFLOXACIN
     Indication: Urinary tract disorder
     Dosage: 1 DOSAGE FORM
     Route: 048
     Dates: start: 20240514, end: 20240518

REACTIONS (5)
  - Tendon pain [Recovering/Resolving]
  - Gait inability [Recovered/Resolved]
  - Tenoplasty [Recovered/Resolved]
  - Tendon rupture [Recovered/Resolved]
  - Inadequate housing [Recovered/Resolved]

NARRATIVE: CASE EVENT DATE: 20240517
